FAERS Safety Report 9541675 (Version 1)
Quarter: 2013Q3

REPORT INFORMATION
  Report Type: Spontaneous
  Country: US (occurrence: US)
  Receive Date: 20130923
  Receipt Date: 20130923
  Transmission Date: 20140515
  Serious: Yes (Other)
  Sender: FDA-Public Use
  Company Number: US-SANOFI-AVENTIS-2013SA091564

PATIENT
  Age: 65 Year
  Sex: Male

DRUGS (2)
  1. LANTUS SOLOSTAR [Suspect]
     Indication: TYPE 2 DIABETES MELLITUS
     Dosage: STARTED SEVERAL YEAR AGO.?DOSE: 80-100 UNITS
     Route: 065
  2. SOLOSTAR [Concomitant]

REACTIONS (4)
  - Ankle fracture [Unknown]
  - Fall [Unknown]
  - Spinal cord disorder [Unknown]
  - Incorrect product storage [Unknown]
